FAERS Safety Report 9435204 (Version 1)
Quarter: 2013Q3

REPORT INFORMATION
  Report Type: Spontaneous
  Country: LK (occurrence: None)
  Receive Date: 20130730
  Receipt Date: 20130730
  Transmission Date: 20140515
  Serious: Yes (Hospitalization)
  Sender: FDA-Public Use
  Company Number: 2013P1012839

PATIENT
  Age: 6 Year
  Sex: Female
  Weight: 27 kg

DRUGS (2)
  1. LEVOCARNITINE [Suspect]
     Indication: HEPATOTOXICITY
     Route: 042
  2. N-ACETYLCYSTEINE [Suspect]
     Indication: HEPATOTOXICITY
     Route: 042

REACTIONS (2)
  - Posterior reversible encephalopathy syndrome [None]
  - Hypertension [None]
